FAERS Safety Report 24381664 (Version 1)
Quarter: 2024Q4

REPORT INFORMATION
  Report Type: Spontaneous
  Country: US (occurrence: US)
  Receive Date: 20241001
  Receipt Date: 20241001
  Transmission Date: 20250115
  Serious: Yes (Hospitalization, Other)
  Sender: NOVO NORDISK
  Company Number: US-NOVOPROD-1289552

PATIENT
  Age: 69 Year
  Sex: Female

DRUGS (3)
  1. OZEMPIC [Suspect]
     Active Substance: SEMAGLUTIDE
     Indication: Type 2 diabetes mellitus
     Dosage: 0.25 MG, QW
     Route: 058
     Dates: start: 2023
  2. OZEMPIC [Suspect]
     Active Substance: SEMAGLUTIDE
     Dosage: 0.25 MG, QW
     Route: 058
  3. OZEMPIC [Suspect]
     Active Substance: SEMAGLUTIDE
     Dosage: 0.5 MG, QW
     Route: 058

REACTIONS (13)
  - Fall [Not Recovered/Not Resolved]
  - Fall [Recovered/Resolved]
  - Foot fracture [Recovered/Resolved]
  - Fall [Recovered/Resolved]
  - Eye contusion [Recovered/Resolved]
  - Head injury [Recovered/Resolved]
  - Fall [Not Recovered/Not Resolved]
  - Limb injury [Not Recovered/Not Resolved]
  - Head injury [Not Recovered/Not Resolved]
  - Weight increased [Not Recovered/Not Resolved]
  - Increased appetite [Not Recovered/Not Resolved]
  - Drug ineffective [Not Recovered/Not Resolved]
  - Inappropriate schedule of product administration [Unknown]

NARRATIVE: CASE EVENT DATE: 20230101
